FAERS Safety Report 4661904-8 (Version None)
Quarter: 2005Q2

REPORT INFORMATION
  Report Type: 
  Country: None (occurrence: None)
  Receive Date: 20050513
  Receipt Date: 20041229
  Transmission Date: 20051028
  Serious: Yes (Hospitalization)
  Sender: FDA-Public Use
  Company Number: DE-MERCK-0501DEU00105

PATIENT
  Age: 55 Year
  Sex: Male

DRUGS (4)
  1. VIOXX [Suspect]
     Route: 048
     Dates: start: 20010101, end: 20040101
  2. THEOPHYLLINE [Concomitant]
     Indication: ASTHMA
     Route: 065
  3. SINGULAIR [Concomitant]
     Indication: ASTHMA
     Route: 065
  4. FLUTICASONE PROPIONATE AND SALMETEROL XINAFOATE [Concomitant]
     Route: 055

REACTIONS (4)
  - ADVERSE EVENT [None]
  - AORTIC VALVE INCOMPETENCE [None]
  - ASTHMA [None]
  - CHEST PAIN [None]
